FAERS Safety Report 8188743 (Version 4)
Quarter: 2013Q2

REPORT INFORMATION
  Report Type: Spontaneous
  Country: US (occurrence: US)
  Receive Date: 20111019
  Receipt Date: 20130529
  Transmission Date: 20140414
  Serious: Yes (Other)
  Sender: FDA-Public Use
  Company Number: US-ASTRAZENECA-2011SE42886

PATIENT
  Age: 53 Year
  Sex: Female

DRUGS (7)
  1. SYMBICORT PMDI [Suspect]
     Dosage: 160/4.5 MCG DAILY
     Route: 055
  2. NEXIUM [Suspect]
     Route: 048
  3. CRESTOR [Suspect]
     Route: 048
  4. ALLERGY MEDICATION [Suspect]
     Route: 065
  5. PROZAC [Concomitant]
  6. XANAX [Concomitant]
  7. ANXIETY MEDICATION [Concomitant]
     Indication: ANXIETY

REACTIONS (8)
  - Neoplasm malignant [Unknown]
  - Cyanosis [Unknown]
  - Panic attack [Unknown]
  - Tooth disorder [Unknown]
  - Rheumatoid arthritis [Unknown]
  - Hernia [Unknown]
  - Blood pressure increased [Unknown]
  - Drug dose omission [Unknown]
